FAERS Safety Report 10008666 (Version 1)
Quarter: 2014Q1

REPORT INFORMATION
  Report Type: Spontaneous
  Country: US (occurrence: US)
  Receive Date: 20140312
  Receipt Date: 20140312
  Transmission Date: 20141002
  Serious: No
  Sender: FDA-Public Use
  Company Number: US-INCYTE CORPORATION-2012IN000184

PATIENT
  Sex: Male

DRUGS (6)
  1. JAKAFI [Suspect]
     Indication: MYELOFIBROSIS
     Dosage: 15 MG, BID
     Route: 048
  2. OMEPRAZOLE [Concomitant]
     Dosage: 20 MG, QD
  3. FLUCONAZOLE [Concomitant]
     Dosage: 400 MG, QD
  4. BACTRIM DS [Concomitant]
     Dosage: TID WEEKLY
  5. PREDNISONE [Concomitant]
     Dosage: 40 MG, QD
  6. CYMBALTA [Concomitant]
     Dosage: 30 MG, QD

REACTIONS (2)
  - Malaise [Recovered/Resolved]
  - Drug ineffective [Recovered/Resolved]
